FAERS Safety Report 5888704-5 (Version None)
Quarter: 2008Q3

REPORT INFORMATION
  Report Type: 
  Country: None (occurrence: None)
  Receive Date: 20080917
  Receipt Date: 20080915
  Transmission Date: 20090109
  Serious: Yes (Death, Hospitalization)
  Sender: FDA-Public Use
  Company Number: 2008SP018993

PATIENT
  Sex: Male
  Weight: 74 kg

DRUGS (2)
  1. PEGATRON (PEGINTERFERON ALFA-28 W/RIBAVIRIN) (PEGYLATED INTERFERON ALF [Suspect]
     Indication: DRUG USE FOR UNKNOWN INDICATION
     Dosage: 0.5 ML; QW; 1000 MG; QD
     Dates: start: 20080807, end: 20080912
  2. PEGATRON (PEGINTERFERON ALFA-28 W/RIBAVIRIN) (PEGYLATED INTERFERON ALF [Suspect]
     Indication: DRUG USE FOR UNKNOWN INDICATION
     Dosage: 0.5 ML; QW; 1000 MG; QD
     Dates: start: 20080807, end: 20080912

REACTIONS (1)
  - HOSPITALISATION [None]
